FAERS Safety Report 6543582-6 (Version None)
Quarter: 2010Q1

REPORT INFORMATION
  Report Type: 
  Country: None (occurrence: None)
  Receive Date: 20100115
  Receipt Date: 20100105
  Transmission Date: 20100710
  Serious: Yes (Hospitalization, Disabling, Other)
  Sender: FDA-Public Use
  Company Number: 2009-200461-NL

PATIENT
  Age: 40 Year
  Sex: Female

DRUGS (2)
  1. NUVARING [Suspect]
     Indication: CONTRACEPTION
     Dosage: 1 DF; VAG
     Route: 067
     Dates: start: 20070426, end: 20070825
  2. IMITREX [Concomitant]

REACTIONS (3)
  - DEEP VEIN THROMBOSIS [None]
  - ISCHAEMIC STROKE [None]
  - PULMONARY EMBOLISM [None]
